FAERS Safety Report 14096032 (Version 2)
Quarter: 2018Q2

REPORT INFORMATION
  Report Type: Spontaneous
  Country: IT (occurrence: IT)
  Receive Date: 20171017
  Receipt Date: 20180621
  Transmission Date: 20180711
  Serious: Yes (Other)
  Sender: FDA-Public Use
  Company Number: IT-B.I. PHARMACEUTICALS,INC./RIDGEFIELD-2017-BI-055065

PATIENT
  Age: 79 Year

DRUGS (1)
  1. PRADAXA [Suspect]
     Active Substance: DABIGATRAN ETEXILATE MESYLATE
     Indication: ATRIAL FIBRILLATION
     Route: 048
     Dates: start: 20160131, end: 20171001

REACTIONS (5)
  - Cognitive disorder [Unknown]
  - Dyspepsia [Unknown]
  - Weight decreased [Unknown]
  - Walking disability [Unknown]
  - Dysphagia [Unknown]

NARRATIVE: CASE EVENT DATE: 20170601
